FAERS Safety Report 5007308-X (Version None)
Quarter: 2006Q2

REPORT INFORMATION
  Report Type: 
  Country: None (occurrence: None)
  Receive Date: 20060517
  Receipt Date: 20060505
  Transmission Date: 20061013
  Serious: Yes (Other)
  Sender: FDA-Public Use
  Company Number: 430129K05USA

PATIENT
  Age: 33 Year
  Sex: Female
  Weight: 57.15 kg

DRUGS (3)
  1. NOVANTRONE [Suspect]
     Indication: MULTIPLE SCLEROSIS
     Dosage: 1 IN 3 MONTHS, INTRAVENOUS
     Route: 042
     Dates: start: 20020315, end: 20050425
  2. COPAXONE [Suspect]
  3. STEROID (CORTICOSTEROID NOS) [Suspect]

REACTIONS (2)
  - AMENORRHOEA [None]
  - PREMATURE MENOPAUSE [None]
